FAERS Safety Report 9565237 (Version 1)
Quarter: 2013Q3

REPORT INFORMATION
  Report Type: Spontaneous
  Country: US (occurrence: US)
  Receive Date: 20130930
  Receipt Date: 20130930
  Transmission Date: 20140515
  Serious: Yes (Death)
  Sender: FDA-Public Use
  Company Number: US-ROCHE-1282487

PATIENT
  Sex: Female

DRUGS (2)
  1. KADCYLA [Suspect]
     Indication: BREAST CANCER
     Route: 065
  2. AROMASIN [Suspect]
     Indication: BREAST CANCER
     Route: 065

REACTIONS (1)
  - Breast cancer [Fatal]
